FAERS Safety Report 19352759 (Version 2)
Quarter: 2022Q1

REPORT INFORMATION
  Report Type: Spontaneous
  Country: IT (occurrence: IT)
  Receive Date: 20210601
  Receipt Date: 20220314
  Transmission Date: 20220423
  Serious: Yes (Hospitalization, Other)
  Sender: FDA-Public Use
  Company Number: IT-SA-2021SA176312

PATIENT
  Age: 31 Year
  Sex: Male

DRUGS (4)
  1. METHYLPREDNISOLONE [Suspect]
     Active Substance: METHYLPREDNISOLONE
     Indication: Autoimmune haemolytic anaemia
     Dosage: 250 MG, QD (STEROID BOLUSES)
     Route: 042
  2. ANTI-THYMOCYTE GLOBULIN (RABBIT) NOS [Suspect]
     Active Substance: LAPINE T-LYMPHOCYTE IMMUNE GLOBULIN
     Indication: Autoimmune haemolytic anaemia
     Dosage: (+3 DAY)
  3. HEPARIN [Concomitant]
     Active Substance: HEPARIN SODIUM
     Indication: Prophylaxis
  4. WHOLE BLOOD [Concomitant]
     Active Substance: WHOLE BLOOD
     Indication: Autoimmune haemolytic anaemia
     Dosage: 3 U

REACTIONS (5)
  - Anaemia [Recovering/Resolving]
  - Treatment failure [Recovering/Resolving]
  - Reticulocytopenia [Not Recovered/Not Resolved]
  - Acute kidney injury [Recovering/Resolving]
  - Blood lactate dehydrogenase increased [Recovering/Resolving]
